FAERS Safety Report 4316414-4 (Version None)
Quarter: 2004Q1

REPORT INFORMATION
  Report Type: 
  Country: None (occurrence: None)
  Receive Date: 20040312
  Receipt Date: 20040303
  Transmission Date: 20041129
  Serious: Yes (Hospitalization)
  Sender: FDA-Public Use
  Company Number: PHHO2004CH03337

PATIENT
  Sex: Female

DRUGS (7)
  1. TEGRETOL [Suspect]
     Indication: AFFECTIVE DISORDER
     Dosage: 200-800 MG/D
     Dates: start: 20030925, end: 20031017
  2. TEGRETOL [Suspect]
     Dosage: 200-800 MG/D
     Dates: start: 20031028
  3. TEGRETOL [Suspect]
     Dosage: NO TREATMENT
     Dates: start: 20031018, end: 20031027
  4. SEROQUEL [Suspect]
     Indication: AFFECTIVE DISORDER
     Dosage: 400-475 MG/D
     Dates: start: 20021129
  5. SEROPRAM [Concomitant]
     Indication: DEPRESSION
     Dates: start: 20021201
  6. THYROID TAB [Concomitant]
     Indication: HYPOTHYROIDISM
     Dates: start: 20021201
  7. CYCLO-PREMELLA [Concomitant]
     Dates: start: 20031001, end: 20031214

REACTIONS (12)
  - ANTINUCLEAR ANTIBODY POSITIVE [None]
  - ARTHRALGIA [None]
  - C-REACTIVE PROTEIN INCREASED [None]
  - COUGH [None]
  - DNA ANTIBODY POSITIVE [None]
  - DYSTHYMIC DISORDER [None]
  - HYPONATRAEMIA [None]
  - LOCALISED OEDEMA [None]
  - MYALGIA [None]
  - POLYARTHRITIS [None]
  - PYREXIA [None]
  - SYSTEMIC LUPUS ERYTHEMATOSUS [None]
